FAERS Safety Report 8440345-1 (Version None)
Quarter: 2012Q2

REPORT INFORMATION
  Report Type: 
  Country: None (occurrence: None)
  Receive Date: 20120615
  Receipt Date: 20120613
  Transmission Date: 20120825
  Serious: No
  Sender: FDA-Public Use
  Company Number: US-BAYER-2012-059377

PATIENT
  Age: 47 Year
  Sex: Female

DRUGS (1)
  1. BETASERON [Suspect]
     Indication: MULTIPLE SCLEROSIS
     Dosage: .25 MG, QOD
     Route: 058
     Dates: start: 20111101

REACTIONS (6)
  - DEPRESSED MOOD [None]
  - PAIN IN EXTREMITY [None]
  - ERYTHEMA [None]
  - INFLUENZA LIKE ILLNESS [None]
  - PRURITUS [None]
  - APATHY [None]
